FAERS Safety Report 6643955-7 (Version None)
Quarter: 2010Q1

REPORT INFORMATION
  Report Type: 
  Country: None (occurrence: None)
  Receive Date: 20100322
  Receipt Date: 20100312
  Transmission Date: 20100710
  Serious: Yes (Hospitalization)
  Sender: FDA-Public Use
  Company Number: NL-MEDIMMUNE-MEDI-0010717

PATIENT
  Sex: Female

DRUGS (2)
  1. SYNAGIS [Suspect]
     Route: 030
     Dates: start: 20091223, end: 20100201
  2. SYNAGIS [Suspect]
     Route: 030
     Dates: start: 20100304

REACTIONS (4)
  - COUGH [None]
  - DIARRHOEA [None]
  - HYPOPHAGIA [None]
  - RHINORRHOEA [None]
